FAERS Safety Report 7737813-4 (Version None)
Quarter: 2011Q3

REPORT INFORMATION
  Report Type: 
  Country: None (occurrence: None)
  Receive Date: 20110908
  Receipt Date: 20110830
  Transmission Date: 20111222
  Serious: Yes (Hospitalization)
  Sender: FDA-Public Use
  Company Number: PHHO2011BR14183

PATIENT
  Sex: Male
  Weight: 22.5 kg

DRUGS (6)
  1. RANITIDINE [Concomitant]
     Dosage: 60 MG, 12/12H
     Route: 048
     Dates: start: 20100601
  2. VITAMIN D [Concomitant]
     Dosage: 200 U, UNK
     Route: 048
     Dates: start: 20080201
  3. ILARIS [Suspect]
     Indication: JUVENILE ARTHRITIS
     Dosage: UNK
  4. CALCIUM CARBONATE [Concomitant]
     Dosage: 500 MG, QD
     Route: 048
     Dates: start: 20080201
  5. NAPROXEN [Concomitant]
     Dosage: 300 MG, UNK
     Route: 048
     Dates: start: 20100901
  6. PREDNISONE [Concomitant]
     Dosage: UNK
     Route: 048
     Dates: end: 20110727

REACTIONS (1)
  - SCARLET FEVER [None]
